FAERS Safety Report 5257811-2 (Version None)
Quarter: 2007Q1

REPORT INFORMATION
  Report Type: 
  Country: None (occurrence: None)
  Receive Date: 20061117
  Receipt Date: 20060406
  Transmission Date: 20070707
  Serious: Yes (Hospitalization)
  Sender: FDA-Public Use
  Company Number: US-JNJFOC-20060401873

PATIENT
  Age: 71 Year
  Sex: Male
  Weight: 62.2789 kg

DRUGS (2)
  1. LEVAQUIN [Suspect]
     Indication: URINARY TRACT INFECTION
     Dosage: 500 MG, 1 IN 1 DAY, ORAL
     Route: 048
     Dates: start: 20050924, end: 20050926
  2. INVESTIGATIONAL PRODUCT (ALL OTHER THERAPEUTIC PRODUCTS) [Suspect]
     Indication: INTESTINAL FUNCTIONAL DISORDER
     Dosage: ORAL
     Route: 048

REACTIONS (1)
  - RENAL FAILURE [None]
